FAERS Safety Report 8348241-5 (Version None)
Quarter: 2012Q2

REPORT INFORMATION
  Report Type: 
  Country: None (occurrence: None)
  Receive Date: 20120509
  Receipt Date: 20120426
  Transmission Date: 20120825
  Serious: Yes (Other)
  Sender: FDA-Public Use
  Company Number: US-MYLANLABS-2012S1008922

PATIENT
  Age: 51 Year
  Sex: Female

DRUGS (5)
  1. BUPROPION HCL [Suspect]
     Indication: DEPRESSION
     Dosage: EXTENDED RELEASE
     Route: 065
  2. LAMICTAL [Concomitant]
     Indication: BIPOLAR I DISORDER
     Route: 065
  3. RISPERDAL [Concomitant]
     Indication: BIPOLAR I DISORDER
     Dosage: AT BEDTIME
     Route: 065
  4. LEVOTHYROXINE SODIUM [Concomitant]
     Indication: HYPOTHYROIDISM
     Route: 065
  5. KLONOPIN [Concomitant]
     Indication: ANXIETY DISORDER
     Route: 065

REACTIONS (3)
  - MONARTHRITIS [None]
  - ANGIOEDEMA [None]
  - JOINT EFFUSION [None]
